FAERS Safety Report 6185654-4 (Version None)
Quarter: 2009Q2

REPORT INFORMATION
  Report Type: 
  Country: None (occurrence: None)
  Receive Date: 20090511
  Receipt Date: 20090421
  Transmission Date: 20091009
  Serious: Yes (Hospitalization)
  Sender: FDA-Public Use
  Company Number: PHHY2009ZA14863

PATIENT
  Sex: Female

DRUGS (4)
  1. DIOVAN HCT [Suspect]
     Dosage: 80 MG
  2. DIOVAN HCT [Suspect]
     Dosage: 160 MG
  3. PREMARIN [Concomitant]
  4. LIBRAX [Concomitant]

REACTIONS (5)
  - BLOOD PRESSURE FLUCTUATION [None]
  - CATARACT OPERATION [None]
  - DRY EYE [None]
  - DYSPEPSIA [None]
  - OESOPHAGEAL DISCOMFORT [None]
